FAERS Safety Report 8504658-7 (Version None)
Quarter: 2012Q3

REPORT INFORMATION
  Report Type: 
  Country: None (occurrence: None)
  Receive Date: 20120711
  Receipt Date: 20120703
  Transmission Date: 20120928
  Serious: Yes (Other)
  Sender: FDA-Public Use
  Company Number: US-RB-042083-12

PATIENT
  Age: 39 Year
  Sex: Female

DRUGS (1)
  1. SUBOXONE [Suspect]
     Indication: PRODUCT USED FOR UNKNOWN INDICATION
     Dosage: UNKNOWN DOSAGE DETAILS
     Route: 065

REACTIONS (6)
  - SUICIDAL IDEATION [None]
  - ASTHENIA [None]
  - UNDERDOSE [None]
  - INSOMNIA [None]
  - ANXIETY [None]
  - DRUG WITHDRAWAL SYNDROME [None]
